FAERS Safety Report 25137314 (Version 1)
Quarter: 2025Q1

REPORT INFORMATION
  Report Type: Spontaneous
  Country: GB (occurrence: GB)
  Receive Date: 20250329
  Receipt Date: 20250329
  Transmission Date: 20250409
  Serious: Yes (Other)
  Sender: AUROBINDO
  Company Number: GB-MHRA-MED-202503171421416200-DFLKC

PATIENT
  Sex: Male

DRUGS (1)
  1. FINASTERIDE [Suspect]
     Active Substance: FINASTERIDE
     Indication: Product used for unknown indication
     Route: 065

REACTIONS (4)
  - Brain fog [Recovering/Resolving]
  - Depression [Recovering/Resolving]
  - Testicular pain [Recovering/Resolving]
  - Anxiety [Recovering/Resolving]
